FAERS Safety Report 6470528-1 (Version None)
Quarter: 2009Q4

REPORT INFORMATION
  Report Type: 
  Country: None (occurrence: None)
  Receive Date: 20091203
  Receipt Date: 20091124
  Transmission Date: 20100525
  Serious: Yes (Other)
  Sender: FDA-Public Use
  Company Number: DE-AMGEN-QUU376354

PATIENT
  Sex: Female
  Weight: 56.2 kg

DRUGS (6)
  1. NEULASTA [Suspect]
     Indication: CHEMOTHERAPY
     Route: 065
     Dates: start: 20091121
  2. UNSPECIFIED ANTIHYPERTENSIVE AGENT [Concomitant]
  3. UNSPECIFIED MEDICATION [Concomitant]
  4. ENALAPRIL [Concomitant]
  5. SIMVASTATIN [Concomitant]
  6. DOCETAXEL [Concomitant]

REACTIONS (14)
  - BEDRIDDEN [None]
  - BLOOD PRESSURE DECREASED [None]
  - CARDIOVASCULAR DISORDER [None]
  - DYSPNOEA [None]
  - DYSSTASIA [None]
  - ERYTHEMA [None]
  - FEELING HOT [None]
  - HEART RATE INCREASED [None]
  - HYPERSENSITIVITY [None]
  - MALAISE [None]
  - MEMORY IMPAIRMENT [None]
  - PALLOR [None]
  - SYNCOPE [None]
  - VERTIGO [None]
